FAERS Safety Report 7979855-X (Version None)
Quarter: 2011Q4

REPORT INFORMATION
  Report Type: 
  Country: None (occurrence: None)
  Receive Date: 20111201
  Receipt Date: 20111116
  Transmission Date: 20120403
  Serious: Yes (Other)
  Sender: FDA-Public Use
  Company Number: 2011SP053937

PATIENT
  Age: 50 Year
  Sex: Male

DRUGS (2)
  1. VICTRELIS [Suspect]
     Indication: HEPATITIS C
  2. INTERFERON [Suspect]
     Indication: PRODUCT USED FOR UNKNOWN INDICATION

REACTIONS (1)
  - PULMONARY EMBOLISM [None]
